FAERS Safety Report 22826688 (Version 5)
Quarter: 2025Q2

REPORT INFORMATION
  Report Type: Report from Study
  Country: BR (occurrence: BR)
  Receive Date: 20230816
  Receipt Date: 20250508
  Transmission Date: 20250717
  Serious: No
  Sender: TAKEDA
  Company Number: BR-TAKEDA-2022TUS083433

PATIENT
  Age: 47 Year
  Sex: Female

DRUGS (1)
  1. VEDOLIZUMAB [Suspect]
     Active Substance: VEDOLIZUMAB
     Indication: Colitis ulcerative

REACTIONS (5)
  - Product dose omission issue [Unknown]
  - Product availability issue [Unknown]
  - Inappropriate schedule of product administration [Unknown]
  - Frequent bowel movements [Unknown]
  - Influenza [Unknown]

NARRATIVE: CASE EVENT DATE: 20230714
